FAERS Safety Report 4427803-1 (Version None)
Quarter: 2004Q3

REPORT INFORMATION
  Report Type: 
  Country: None (occurrence: None)
  Receive Date: 20040816
  Receipt Date: 20040816
  Transmission Date: 20050211
  Serious: No
  Sender: FDA-Public Use
  Company Number: None

PATIENT
  Sex: Female
  Weight: 54.4316 kg

DRUGS (2)
  1. PAXIL CR [Suspect]
     Indication: ANXIETY
     Dosage: 1 PILL
     Dates: start: 19990820, end: 20031120
  2. PAXIL CR [Suspect]
     Indication: DEPRESSION
     Dosage: 1 PILL
     Dates: start: 19990820, end: 20031120

REACTIONS (4)
  - BALANCE DISORDER [None]
  - CRYING [None]
  - DRUG WITHDRAWAL SYNDROME [None]
  - MOOD SWINGS [None]
